FAERS Safety Report 4521854-4 (Version None)
Quarter: 2004Q4

REPORT INFORMATION
  Report Type: 
  Country: None (occurrence: None)
  Receive Date: 20041206
  Receipt Date: 20041119
  Transmission Date: 20050328
  Serious: Yes (Hospitalization)
  Sender: FDA-Public Use
  Company Number: 2004EU002087

PATIENT
  Age: 68 Year
  Sex: Male
  Weight: 99 kg

DRUGS (10)
  1. PROGRAF [Suspect]
     Indication: RENAL TRANSPLANT
     Dosage: SEE IMAGE, ORAL
     Route: 048
     Dates: start: 20040925, end: 20040930
  2. PROGRAF [Suspect]
     Indication: RENAL TRANSPLANT
     Dosage: SEE IMAGE, ORAL
     Route: 048
     Dates: start: 20041001, end: 20041002
  3. PROGRAF [Suspect]
     Indication: RENAL TRANSPLANT
     Dosage: SEE IMAGE, ORAL
     Route: 048
     Dates: start: 20041003, end: 20041003
  4. PROGRAF [Suspect]
     Indication: RENAL TRANSPLANT
     Dosage: SEE IMAGE, ORAL
     Route: 048
     Dates: start: 20041004, end: 20041005
  5. PROGRAF [Suspect]
     Indication: RENAL TRANSPLANT
     Dosage: SEE IMAGE, ORAL
     Route: 048
     Dates: start: 20041006
  6. OMEPRAZOLE [Suspect]
     Dosage: 20.00 MG
  7. PYOSTACINE (PRISTINAMYCIN) TABLET, 500MG [Suspect]
     Dosage: 1.00 G, BID, ORAL
     Route: 048
     Dates: start: 20041003, end: 20041004
  8. BACTRIM [Concomitant]
  9. PREVISCAN (FLUINDIONE) TABLET [Concomitant]
  10. CELLCEPT [Concomitant]

REACTIONS (6)
  - DRUG INTERACTION [None]
  - ERYSIPELAS [None]
  - HYPERKALAEMIA [None]
  - IMMUNOSUPPRESSANT DRUG LEVEL INCREASED [None]
  - OVERDOSE [None]
  - RENAL FAILURE ACUTE [None]
